FAERS Safety Report 23281789 (Version 1)
Quarter: 2023Q4

REPORT INFORMATION
  Report Type: Other
  Country: IN (occurrence: None)
  Receive Date: 20231211
  Receipt Date: 20231211
  Transmission Date: 20240109
  Serious: Yes (Hospitalization)
  Sender: FDA-Public Use
  Company Number: IN-ROCHE-3409196

PATIENT
  Sex: Female

DRUGS (1)
  1. PHESGO [Suspect]
     Active Substance: HYALURONIDASE-ZZXF\PERTUZUMAB\TRASTUZUMAB
     Indication: Gallbladder cancer metastatic
     Route: 058
     Dates: start: 20230819

REACTIONS (4)
  - Cardiac failure [Unknown]
  - Hepatic ischaemia [Unknown]
  - Hypotension [Unknown]
  - Off label use [Unknown]
